FAERS Safety Report 13348206 (Version 3)
Quarter: 2017Q2

REPORT INFORMATION
  Report Type: Report from Study
  Country: FR (occurrence: FR)
  Receive Date: 20170318
  Receipt Date: 20170511
  Transmission Date: 20170830
  Serious: Yes (Hospitalization, Other)
  Sender: FDA-Public Use
  Company Number: FR-AMGEN-FRACT2017037893

PATIENT
  Age: 37 Year
  Sex: Female
  Weight: 81 kg

DRUGS (18)
  1. CIPROFLOXACINE [Concomitant]
     Active Substance: CIPROFLOXACIN
     Indication: ANAL FISTULA
  2. FEC [Suspect]
     Active Substance: CYCLOPHOSPHAMIDE\EPIRUBICIN HYDROCHLORIDE\FLUOROURACIL
     Indication: BREAST CANCER
     Dosage: 965MG/183MG/965MG
     Route: 042
     Dates: start: 20100630
  3. RATIOGRASTIM [Concomitant]
     Active Substance: FILGRASTIM
     Dosage: UNK
     Dates: start: 20101008, end: 20101009
  4. ZOPHREN [Concomitant]
     Active Substance: ONDANSETRON
     Indication: VOMITING
     Dosage: 8 MG, BID
     Dates: start: 20100921, end: 20100922
  5. DOXYLIS [Concomitant]
     Indication: INFECTION PROPHYLAXIS
     Dosage: 200 MG, UNK
     Dates: start: 20100630
  6. PLASTENAN [Concomitant]
     Indication: ANAL FISSURE
     Dosage: 2 UNK, QD
     Dates: start: 20100921
  7. RATIOGRASTIM [Concomitant]
     Active Substance: FILGRASTIM
     Dosage: UNK
     Dates: start: 20101012, end: 20101014
  8. DIFFU K [Concomitant]
     Active Substance: POTASSIUM CHLORIDE
     Indication: HYPOKALAEMIA
     Dosage: 3600 MG, UNK
     Dates: start: 20100921
  9. BICARBONATE [Concomitant]
     Active Substance: BICARBONATE ION
     Indication: MUCOSAL INFLAMMATION
     Dosage: 6 UNK, QD
     Dates: start: 20100921
  10. PANITUMUMAB [Suspect]
     Active Substance: PANITUMUMAB
     Indication: BREAST CANCER
     Dosage: 729 MG, UNK
     Route: 042
     Dates: start: 20100630
  11. CIPROFLOXACINE [Concomitant]
     Active Substance: CIPROFLOXACIN
     Indication: INFECTION PROPHYLAXIS
     Dosage: 1 G, UNK
     Dates: start: 20100913, end: 20100923
  12. TAXOTERE [Suspect]
     Active Substance: DOCETAXEL
     Indication: BREAST CANCER
     Dosage: 193 MG, UNK
     Route: 042
     Dates: start: 20101006
  13. PRIMPERAN [Concomitant]
     Active Substance: METOCLOPRAMIDE HYDROCHLORIDE
     Indication: VOMITING
     Dosage: 30 MG, UNK
     Dates: start: 20100922, end: 20100922
  14. ELUDRIL [Concomitant]
     Active Substance: CHLORHEXIDINE GLUCONATE\CHLOROBUTANOL
     Indication: MUCOSAL INFLAMMATION
     Dosage: 6 UNK, QD
     Dates: start: 20100921
  15. SOLU-MEDROL [Concomitant]
     Active Substance: METHYLPREDNISOLONE SODIUM SUCCINATE
     Indication: NEUTROPENIA
     Dosage: 60 MG, QD
     Dates: start: 20101110
  16. DOXYCYCLINE. [Concomitant]
     Active Substance: DOXYCYCLINE
     Dosage: UNK
     Dates: start: 20100630
  17. TITANOREINE [Concomitant]
     Active Substance: CARRAGEENAN\TITANIUM\ZINC
     Indication: ANAL FISSURE
     Dosage: 2 UNK, QD
     Dates: start: 20100921
  18. PEVARYL [Concomitant]
     Active Substance: ECONAZOLE NITRATE

REACTIONS (3)
  - Febrile bone marrow aplasia [Recovered/Resolved]
  - Abdominal pain [Recovered/Resolved]
  - Erythema [Recovered/Resolved]

NARRATIVE: CASE EVENT DATE: 20100921
